FAERS Safety Report 6416217-0 (Version None)
Quarter: 2009Q4

REPORT INFORMATION
  Report Type: 
  Country: None (occurrence: None)
  Receive Date: 20091027
  Receipt Date: 20091026
  Transmission Date: 20100525
  Serious: Yes (Other)
  Sender: FDA-Public Use
  Company Number: US-PFIZER INC-2009251958

PATIENT
  Sex: Female
  Weight: 59.4 kg

DRUGS (2)
  1. CHANTIX [Suspect]
     Indication: SMOKING CESSATION THERAPY
     Dosage: 1 MG, 2X/DAY
     Route: 048
     Dates: start: 20090626, end: 20090724
  2. PEPTO-BISMOL [Concomitant]
     Dosage: UNK
     Route: 048

REACTIONS (2)
  - CHEILITIS [None]
  - STOMATITIS [None]
